FAERS Safety Report 5515422-5 (Version None)
Quarter: 2007Q4

REPORT INFORMATION
  Report Type: 
  Country: None (occurrence: None)
  Receive Date: 20071113
  Receipt Date: 20070212
  Transmission Date: 20080405
  Serious: No
  Sender: FDA-Public Use
  Company Number: A0639431A

PATIENT
  Sex: Male

DRUGS (6)
  1. COREG [Suspect]
     Dosage: 6.25MG TWICE PER DAY
     Route: 048
  2. PLAVIX [Concomitant]
  3. ASPIRIN [Concomitant]
  4. FISH OIL [Concomitant]
  5. VYTORIN [Concomitant]
  6. ZOLOFT [Concomitant]

REACTIONS (3)
  - DYSPNOEA [None]
  - INSOMNIA [None]
  - NIGHT SWEATS [None]
